FAERS Safety Report 9171366 (Version 1)
Quarter: 2013Q1

REPORT INFORMATION
  Report Type: Spontaneous
  Country: US (occurrence: None)
  Receive Date: 20130318
  Receipt Date: 20130318
  Transmission Date: 20140127
  Serious: Yes (Life-Threatening, Hospitalization)
  Sender: FDA-Public Use
  Company Number: None

PATIENT
  Age: 51 Year
  Sex: Male
  Weight: 90.2 kg

DRUGS (5)
  1. TOLVAPTAN, 15 MG, OTSUKA [Suspect]
     Indication: HYPONATRAEMIA
     Route: 048
     Dates: start: 20130219, end: 20130220
  2. BUMEX [Concomitant]
  3. DIGOXIN [Concomitant]
  4. ENALAPRIL [Concomitant]
  5. WARFARIN [Concomitant]

REACTIONS (3)
  - Blood sodium increased [None]
  - Convulsion [None]
  - Depressed level of consciousness [None]
